FAERS Safety Report 8051632-3 (Version None)
Quarter: 2012Q1

REPORT INFORMATION
  Report Type: 
  Country: None (occurrence: None)
  Receive Date: 20120118
  Receipt Date: 20120109
  Transmission Date: 20120608
  Serious: No
  Sender: FDA-Public Use
  Company Number: US-BIOGENIDEC-2012BI000985

PATIENT
  Sex: Female

DRUGS (2)
  1. AVONEX [Suspect]
     Indication: MULTIPLE SCLEROSIS
     Route: 030
     Dates: start: 20001001, end: 20030101
  2. AVONEX [Suspect]
     Route: 030
     Dates: start: 20030101

REACTIONS (12)
  - TOOTH FRACTURE [None]
  - NAUSEA [None]
  - GAIT DISTURBANCE [None]
  - HEPATIC ENZYME ABNORMAL [None]
  - CHOLELITHIASIS [None]
  - DIARRHOEA [None]
  - APHAGIA [None]
  - FALL [None]
  - DIZZINESS [None]
  - FATIGUE [None]
  - CLOSTRIDIAL INFECTION [None]
  - ASTHENIA [None]
